FAERS Safety Report 4864562-2 (Version None)
Quarter: 2005Q4

REPORT INFORMATION
  Report Type: 
  Country: None (occurrence: None)
  Receive Date: 20051222
  Receipt Date: 20051201
  Transmission Date: 20060501
  Serious: Yes (Hospitalization, Other)
  Sender: FDA-Public Use
  Company Number: IL-NOVOPROD-249272

PATIENT
  Age: 68 Year
  Sex: Female
  Weight: 79 kg

DRUGS (9)
  1. LEVEMIR [Suspect]
     Indication: DIABETES MELLITUS
     Dosage: 24 IU, QD
     Route: 058
     Dates: start: 20050901
  2. CONVERTIN [Concomitant]
     Dosage: 5 MG, UNK
     Route: 048
     Dates: start: 20000101
  3. DIMITONE [Concomitant]
     Dosage: 25 MG, UNK
     Route: 048
     Dates: start: 20010101
  4. CARTIA                                  /USA/ [Concomitant]
     Dosage: 100 MG, UNK
     Route: 048
     Dates: start: 19990101
  5. FUROSEMIDE [Concomitant]
     Dosage: 60 MG, UNK
     Route: 048
     Dates: start: 20030101
  6. ATORVASTATIN [Concomitant]
     Dosage: 20 MG, UNK
     Route: 048
     Dates: start: 20000101
  7. PREDNISONE TAB [Concomitant]
     Dosage: 40 MG, UNK
     Dates: start: 20030101
  8. RECORMON                                /SCH/ [Concomitant]
     Dosage: 3000 IU, UNK
     Dates: start: 20040101
  9. NORVASC [Concomitant]
     Dosage: 10 MG, UNK
     Dates: start: 20020101

REACTIONS (4)
  - HYPOGLYCAEMIA [None]
  - HYPOTENSION [None]
  - HYPOTHERMIA [None]
  - PNEUMONIA [None]
